FAERS Safety Report 19171682 (Version 6)
Quarter: 2022Q1

REPORT INFORMATION
  Report Type: Report from Study
  Country: US (occurrence: US)
  Receive Date: 20210423
  Receipt Date: 20220329
  Transmission Date: 20220423
  Serious: Yes (Hospitalization)
  Sender: FDA-Public Use
  Company Number: US-BOEHRINGERINGELHEIM-2021-BI-076191

PATIENT
  Age: 57 Year
  Sex: Female
  Weight: 55.34 kg

DRUGS (3)
  1. OFEV [Suspect]
     Active Substance: NINTEDANIB
     Indication: Idiopathic pulmonary fibrosis
     Route: 048
     Dates: start: 20210111, end: 202111
  2. OFEV [Suspect]
     Active Substance: NINTEDANIB
     Route: 048
  3. OFEV [Suspect]
     Active Substance: NINTEDANIB
     Route: 048
     Dates: start: 20210901, end: 202111

REACTIONS (11)
  - Diarrhoea [Recovering/Resolving]
  - Lung disorder [Unknown]
  - Leukocytosis [Unknown]
  - Blood iron decreased [Unknown]
  - Dehydration [Unknown]
  - Syncope [Unknown]
  - Haematochezia [Unknown]
  - Blood potassium decreased [Unknown]
  - Coronavirus infection [Unknown]
  - Weight decreased [Unknown]
  - Dry mouth [Unknown]

NARRATIVE: CASE EVENT DATE: 20210101
